FAERS Safety Report 5519824-2 (Version None)
Quarter: 2007Q4

REPORT INFORMATION
  Report Type: 
  Country: None (occurrence: None)
  Receive Date: 20071116
  Receipt Date: 20070829
  Transmission Date: 20080405
  Serious: No
  Sender: FDA-Public Use
  Company Number: A0678615A

PATIENT
  Age: 70 Year
  Sex: Female

DRUGS (7)
  1. COREG CR [Suspect]
     Indication: LEFT VENTRICULAR DYSFUNCTION
     Dosage: 10MG PER DAY
     Route: 048
     Dates: start: 20070823
  2. INSULIN [Concomitant]
  3. GLUCOPHAGE [Concomitant]
  4. BENICAR [Concomitant]
  5. HYDROCHLOROTHIAZIDE [Concomitant]
  6. ZETIA [Concomitant]
  7. PROTONIX [Concomitant]

REACTIONS (1)
  - BLOOD PRESSURE INCREASED [None]
